FAERS Safety Report 4568224-0 (Version None)
Quarter: 2005Q1

REPORT INFORMATION
  Report Type: 
  Country: None (occurrence: None)
  Receive Date: 20050131
  Receipt Date: 20050113
  Transmission Date: 20050727
  Serious: Yes (Other)
  Sender: FDA-Public Use
  Company Number: TRP_0025_2004

PATIENT
  Age: 46 Year
  Sex: Male

DRUGS (4)
  1. RIBASPHERE [Suspect]
     Indication: HEPATITIS C
     Dosage: 1200 MG QDAY PO
     Route: 048
     Dates: start: 20040701, end: 20040819
  2. PEG-INTRON [Suspect]
     Indication: HEPATITIS C
     Dosage: 150 MCG QWK SC
     Route: 058
     Dates: start: 20040701, end: 20040819
  3. PROZAC [Suspect]
     Indication: DEPRESSION
     Dosage: 40 MG PO
     Route: 048
  4. ADVIL COLD AND SINUS [Concomitant]

REACTIONS (3)
  - ANGER [None]
  - HOMICIDAL IDEATION [None]
  - PSYCHOTIC DISORDER [None]
